FAERS Safety Report 7303769 (Version 2)
Quarter: 2013Q2

REPORT INFORMATION
  Report Type: Spontaneous
  Country: US (occurrence: US)
  Receive Date: 20100303
  Receipt Date: 20130619
  Transmission Date: 20140414
  Serious: Yes (Other)
  Sender: FDA-Public Use
  Company Number: CHPA2008US06693

PATIENT
  Age: 53 Year
  Sex: Female

DRUGS (2)
  1. EXCEDRIN EXTRA STRENGTH [Suspect]
     Indication: BACK PAIN
     Dosage: 2 DF, TID
     Route: 048
     Dates: start: 2003
  2. EXCEDRIN EXTRA STRENGTH [Suspect]
     Indication: HEADACHE
     Dosage: 2 DF, QD PRN
     Route: 048
     Dates: start: 2009, end: 201002

REACTIONS (9)
  - Cerebrovascular accident [Unknown]
  - Myocardial infarction [Unknown]
  - Blood pressure increased [Unknown]
  - Pharyngeal oedema [Recovered/Resolved]
  - Choking sensation [Recovered/Resolved]
  - Pallor [Recovered/Resolved]
  - Chest pain [Recovered/Resolved]
  - Chest discomfort [Unknown]
  - Dyspnoea [Unknown]
